FAERS Safety Report 25892447 (Version 1)
Quarter: 2025Q4

REPORT INFORMATION
  Report Type: Spontaneous
  Country: US (occurrence: None)
  Receive Date: 20251007
  Receipt Date: 20251007
  Transmission Date: 20260118
  Serious: Yes (Other)
  Sender: FDA-CTU
  Company Number: None

PATIENT
  Age: 60 Year
  Sex: Female
  Weight: 72.6 kg

DRUGS (1)
  1. VANCOMYCIN [Suspect]
     Active Substance: VANCOMYCIN
     Dosage: FREQUENCY : ONCE;?
     Route: 042

REACTIONS (5)
  - Vancomycin infusion reaction [None]
  - Muscle twitching [None]
  - Gastrointestinal pain [None]
  - Palpitations [None]
  - Oropharyngeal pain [None]

NARRATIVE: CASE EVENT DATE: 20251003
